FAERS Safety Report 4502450-1 (Version None)
Quarter: 2004Q4

REPORT INFORMATION
  Report Type: 
  Country: None (occurrence: None)
  Receive Date: 20041110
  Receipt Date: 20041029
  Transmission Date: 20050328
  Serious: Yes (Hospitalization)
  Sender: FDA-Public Use
  Company Number: 2004CG02206

PATIENT
  Age: 59 Year
  Sex: Male

DRUGS (6)
  1. OMEPRAZOLE [Suspect]
     Dosage: 20 MG DAILY PO
     Route: 048
     Dates: start: 20040906, end: 20040915
  2. NILEVAR [Suspect]
     Indication: BONE MARROW DEPRESSION
     Dates: start: 19970626, end: 20040301
  3. NILEVAR [Suspect]
     Indication: BONE MARROW DEPRESSION
     Dosage: 1 DF DAILY PO
     Route: 048
     Dates: start: 20040301, end: 20040101
  4. CIPROFLOXACIN [Suspect]
     Dates: start: 20040904, end: 20040907
  5. TIENAM /SCH/ [Suspect]
     Dates: start: 20040904, end: 20040907
  6. AMOXICILLIN [Suspect]
     Dosage: 2 G TID IV
     Route: 042
     Dates: start: 20040907, end: 20040914

REACTIONS (1)
  - CARDIAC FAILURE CONGESTIVE [None]
